FAERS Safety Report 24583604 (Version 2)
Quarter: 2024Q4

REPORT INFORMATION
  Report Type: Report from Study
  Country: KR (occurrence: KR)
  Receive Date: 20241106
  Receipt Date: 20241125
  Transmission Date: 20250115
  Serious: Yes (Other)
  Sender: AMGEN
  Company Number: KR-AMGEN-KORNI2024216215

PATIENT
  Age: 71 Year
  Sex: Male

DRUGS (10)
  1. TARLATAMAB [Suspect]
     Active Substance: TARLATAMAB
     Indication: Small cell lung cancer
     Dosage: UNK
     Route: 065
     Dates: start: 20240830
  2. TARLATAMAB [Suspect]
     Active Substance: TARLATAMAB
     Dosage: UNK
     Route: 065
  3. TARLATAMAB [Suspect]
     Active Substance: TARLATAMAB
     Dosage: UNK
     Route: 065
     Dates: end: 20241011
  4. VILDAGLIPTIN [Concomitant]
     Active Substance: VILDAGLIPTIN
     Indication: Diabetes mellitus
     Dosage: 50 MILLIGRAM, QD
     Route: 048
     Dates: start: 202311, end: 20241016
  5. LEVOTICS CR [Concomitant]
     Indication: Cough
     Dosage: 90 MILLIGRAM, BID
     Route: 048
     Dates: start: 20231215, end: 20241016
  6. SYNATURA [Concomitant]
     Indication: Productive cough
     Dosage: 15 MILLILITER, TID
     Route: 048
     Dates: start: 20240605, end: 20241016
  7. Codaewon S [Concomitant]
     Indication: Cough
     Dosage: 20 MILLILITER, TID
     Route: 048
     Dates: start: 20240617, end: 20241016
  8. NEXIUM [Concomitant]
     Active Substance: ESOMEPRAZOLE MAGNESIUM
     Indication: Prophylaxis
     Dosage: 20 MILLIGRAM, QD
     Route: 048
     Dates: start: 20240905, end: 20241016
  9. DEXAMETHASONE [Concomitant]
     Active Substance: DEXAMETHASONE
     Indication: Prophylaxis
     Dosage: 3T BID, 2T BID, 1T BID
     Route: 048
     Dates: start: 20240903, end: 20241016
  10. SODIUM CHLORIDE [Concomitant]
     Active Substance: SODIUM CHLORIDE
     Indication: Dehydration
     Dosage: 1000 MILLILITER
     Route: 040
     Dates: start: 20241028

REACTIONS (5)
  - Delirium [Unknown]
  - Dyspnoea [Unknown]
  - Terminal state [Unknown]
  - Mobility decreased [Unknown]
  - Disorientation [Unknown]

NARRATIVE: CASE EVENT DATE: 20241001
